FAERS Safety Report 4736422-9 (Version None)
Quarter: 2005Q3

REPORT INFORMATION
  Report Type: 
  Country: None (occurrence: None)
  Receive Date: 20050802
  Receipt Date: 20050719
  Transmission Date: 20060218
  Serious: Yes (Disabling)
  Sender: FDA-Public Use
  Company Number: 8011144

PATIENT
  Age: 37 Year
  Sex: Male

DRUGS (2)
  1. KEPPRA [Suspect]
     Indication: EPILEPSY
     Dosage: 500 MG 2/D PO
     Route: 048
     Dates: start: 20050201
  2. TEGRETOL [Suspect]
     Dosage: 800 MG 2/D PO
     Route: 048

REACTIONS (5)
  - BALANCE DISORDER [None]
  - CONVULSION [None]
  - DIZZINESS [None]
  - DRUG INTERACTION [None]
  - VISION BLURRED [None]
